APPROVED DRUG PRODUCT: HALOPERIDOL
Active Ingredient: HALOPERIDOL
Strength: 10MG
Dosage Form/Route: TABLET;ORAL
Application: A071235 | Product #005
Applicant: STRIDES PHARMA INTERNATIONAL AG
Approved: Jul 20, 1987 | RLD: No | RS: No | Type: DISCN